FAERS Safety Report 8576843-X (Version None)
Quarter: 2012Q3

REPORT INFORMATION
  Report Type: 
  Country: None (occurrence: None)
  Receive Date: 20120807
  Receipt Date: 20120724
  Transmission Date: 20120928
  Serious: No
  Sender: FDA-Public Use
  Company Number: US-ASTRAZENECA-2012SE52230

PATIENT

DRUGS (9)
  1. HYDROCHLOROTHIAZDE TAB [Concomitant]
     Route: 048
  2. ONDANSETRON HCL [Concomitant]
     Route: 048
  3. SUCRALFATE [Concomitant]
     Route: 048
  4. NEXIUM [Suspect]
     Route: 048
  5. BENADRYL [Concomitant]
     Route: 048
  6. FLEXERII [Concomitant]
     Route: 048
  7. LISINOPRIL [Concomitant]
     Route: 048
  8. PROAIR HFA [Concomitant]
     Dosage: 108 90 BASE MCG AS NEEDED
     Route: 055
  9. UTA [Concomitant]
     Route: 048

REACTIONS (9)
  - ACUTE SINUSITIS [None]
  - GASTROOESOPHAGEAL REFLUX DISEASE [None]
  - ANXIETY [None]
  - BACK PAIN [None]
  - DRUG HYPERSENSITIVITY [None]
  - OSTEOPOROSIS [None]
  - NAUSEA [None]
  - CHEST PAIN [None]
  - HYPERTENSION [None]
